FAERS Safety Report 7014494-9 (Version None)
Quarter: 2010Q3

REPORT INFORMATION
  Report Type: 
  Country: None (occurrence: None)
  Receive Date: 20100927
  Receipt Date: 20100916
  Transmission Date: 20110219
  Serious: Yes (Hospitalization, Disabling, Congenital Anomaly)
  Sender: FDA-Public Use
  Company Number: BR-ASTRAZENECA-2010SE43923

PATIENT
  Age: 88 Year
  Sex: Female

DRUGS (4)
  1. SEROQUEL [Suspect]
     Indication: DEMENTIA ALZHEIMER'S TYPE
     Route: 048
     Dates: start: 20080101, end: 20091201
  2. SEROQUEL [Suspect]
     Route: 048
     Dates: start: 20091201, end: 20100701
  3. SEROQUEL [Suspect]
     Route: 048
     Dates: start: 20100701
  4. ERANZ [Concomitant]
     Indication: DEMENTIA ALZHEIMER'S TYPE
     Route: 048
     Dates: start: 20090101

REACTIONS (5)
  - FEMUR FRACTURE [None]
  - GAIT DISTURBANCE [None]
  - MENTAL IMPAIRMENT [None]
  - OEDEMA PERIPHERAL [None]
  - OFF LABEL USE [None]
